FAERS Safety Report 8247232-2 (Version None)
Quarter: 2012Q1

REPORT INFORMATION
  Report Type: 
  Country: None (occurrence: None)
  Receive Date: 20120330
  Receipt Date: 20120322
  Transmission Date: 20120608
  Serious: Yes (Death)
  Sender: FDA-Public Use
  Company Number: JP-MILLENNIUM PHARMACEUTICALS, INC.-2012-02058

PATIENT

DRUGS (2)
  1. DEXAMETHASONE [Suspect]
     Indication: MYELOMA RECURRENCE
     Dosage: UNK
  2. VELCADE [Suspect]
     Indication: MYELOMA RECURRENCE
     Dosage: 1.3 MG/M2, CYCLIC
     Route: 042

REACTIONS (1)
  - DEATH [None]
